FAERS Safety Report 15193215 (Version 1)
Quarter: 2018Q3

REPORT INFORMATION
  Report Type: Spontaneous
  Country: US (occurrence: US)
  Receive Date: 20180725
  Receipt Date: 20180725
  Transmission Date: 20181010
  Serious: Yes (Hospitalization, Other)
  Sender: FDA-Public Use
  Company Number: US-ASTRAZENECA-2018SE93332

PATIENT

DRUGS (2)
  1. BRILINTA [Suspect]
     Active Substance: TICAGRELOR
     Indication: STENT PLACEMENT
     Dosage: UNKNOWN
     Route: 048
  2. ATIVAN [Concomitant]
     Active Substance: LORAZEPAM

REACTIONS (11)
  - Atrial flutter [Unknown]
  - Tachycardia [Unknown]
  - Cardiac disorder [Unknown]
  - Chest discomfort [Unknown]
  - Seizure [Unknown]
  - Drug ineffective [Unknown]
  - Atrial fibrillation [Unknown]
  - Chest pain [Unknown]
  - Arrhythmia [Unknown]
  - Tongue injury [Unknown]
  - Condition aggravated [Unknown]
